FAERS Safety Report 16703228 (Version 2)
Quarter: 2019Q3

REPORT INFORMATION
  Report Type: Report from Study
  Country: US (occurrence: US)
  Receive Date: 20190814
  Receipt Date: 20190920
  Transmission Date: 20191004
  Serious: Yes (Hospitalization, Other)
  Sender: FDA-Public Use
  Company Number: US-BAYER-2019-147074

PATIENT

DRUGS (1)
  1. AFRIN ORIGINAL [Suspect]
     Active Substance: OXYMETAZOLINE HYDROCHLORIDE

REACTIONS (5)
  - Myocardial infarction [None]
  - Cerebrovascular accident [None]
  - Vein disorder [None]
  - Cardiovascular disorder [None]
  - Oxygen saturation decreased [None]

NARRATIVE: CASE EVENT DATE: 20190806
